FAERS Safety Report 14210087 (Version 2)
Quarter: 2018Q1

REPORT INFORMATION
  Report Type: Spontaneous
  Country: US (occurrence: US)
  Receive Date: 20171121
  Receipt Date: 20180117
  Transmission Date: 20180508
  Serious: No
  Sender: FDA-Public Use
  Company Number: US-JNJFOC-20171117021

PATIENT
  Sex: Female

DRUGS (12)
  1. SIMPONI [Suspect]
     Active Substance: GOLIMUMAB
     Indication: RHEUMATOID ARTHRITIS
     Route: 058
  2. TRIMO SAN [Concomitant]
     Active Substance: OXYQUINOLINE SULFATE\SODIUM LAURYL SULFATE
     Route: 065
  3. SIMPONI [Suspect]
     Active Substance: GOLIMUMAB
     Indication: RHEUMATOID ARTHRITIS
     Route: 058
     Dates: start: 20130918
  4. VOLTAREN [Concomitant]
     Active Substance: DICLOFENAC SODIUM
     Route: 065
  5. CALCIUM +VIT D [Concomitant]
     Active Substance: CALCIUM\VITAMIN D
     Route: 065
  6. ASPIRIN. [Concomitant]
     Active Substance: ASPIRIN
     Route: 048
  7. METHOTREXATE. [Concomitant]
     Active Substance: METHOTREXATE
     Route: 065
  8. FOLIC ACID. [Concomitant]
     Active Substance: FOLIC ACID
     Route: 065
  9. NEXIUM [Concomitant]
     Active Substance: ESOMEPRAZOLE MAGNESIUM
     Route: 048
  10. TUMS [Concomitant]
     Active Substance: CALCIUM CARBONATE
     Route: 065
  11. LEUCOVORIN. [Concomitant]
     Active Substance: LEUCOVORIN
     Route: 065
  12. CETAPHIL [Concomitant]
     Active Substance: AVOBENZONE\OCTOCRYLENE\TRICLOSAN
     Route: 065

REACTIONS (2)
  - Decreased immune responsiveness [Not Recovered/Not Resolved]
  - Impaired healing [Unknown]
